FAERS Safety Report 5932779-1 (Version None)
Quarter: 2008Q4

REPORT INFORMATION
  Report Type: 
  Country: None (occurrence: None)
  Receive Date: 20081028
  Receipt Date: 20081024
  Transmission Date: 20090506
  Serious: Yes (Other)
  Sender: FDA-Public Use
  Company Number: B0481617A

PATIENT
  Age: 65 Year
  Sex: Male

DRUGS (19)
  1. EPZICOM [Suspect]
     Indication: ACQUIRED IMMUNODEFICIENCY SYNDROME
     Route: 048
     Dates: start: 20060606
  2. STOCRIN [Suspect]
     Indication: ACQUIRED IMMUNODEFICIENCY SYNDROME
     Route: 048
     Dates: start: 20010912, end: 20070521
  3. VIRAMUNE [Suspect]
     Indication: ACQUIRED IMMUNODEFICIENCY SYNDROME
     Route: 048
     Dates: start: 20061114, end: 20061225
  4. ZIAGEN [Concomitant]
     Indication: ACQUIRED IMMUNODEFICIENCY SYNDROME
     Route: 048
     Dates: start: 20010912, end: 20060605
  5. VIREAD [Concomitant]
     Indication: ACQUIRED IMMUNODEFICIENCY SYNDROME
     Route: 048
     Dates: start: 20020204, end: 20060605
  6. PAXIL [Concomitant]
     Indication: PANIC DISORDER
     Dosage: 10MG PER DAY
     Route: 048
     Dates: start: 20060401
  7. LORAZEPAM [Concomitant]
     Indication: PANIC DISORDER
     Route: 048
     Dates: start: 20060401, end: 20061009
  8. LENDORMIN [Concomitant]
     Indication: PANIC DISORDER
     Route: 048
     Dates: start: 20060401
  9. NOVOLIN N [Concomitant]
     Indication: DIABETES MELLITUS
     Dosage: 2IU PER DAY
     Route: 058
     Dates: start: 20070301
  10. NOVOLIN R [Concomitant]
     Indication: DIABETES MELLITUS
     Route: 058
     Dates: start: 20061115
  11. SELBEX [Concomitant]
     Indication: ABDOMINAL PAIN
     Dosage: 50MG TWICE PER DAY
     Route: 048
     Dates: start: 20061128, end: 20070122
  12. FAMOTIDINE [Concomitant]
     Indication: ABDOMINAL PAIN
     Dosage: 10MG TWICE PER DAY
     Route: 048
     Dates: start: 20070123
  13. MAGNESIUM OXIDE [Concomitant]
     Dosage: 1G PER DAY
     Route: 048
     Dates: start: 20060401, end: 20070228
  14. RECOMBINATE [Concomitant]
     Indication: FACTOR VIII DEFICIENCY
     Dosage: 1IU3 TWO TIMES PER WEEK
     Route: 058
     Dates: start: 20060401
  15. RECOMBINATE [Concomitant]
     Route: 058
     Dates: start: 20070401
  16. LEXIVA [Concomitant]
     Indication: ACQUIRED IMMUNODEFICIENCY SYNDROME
     Dosage: 2800MG PER DAY
     Route: 048
     Dates: start: 20070522, end: 20070618
  17. REYATAZ [Concomitant]
     Indication: ACQUIRED IMMUNODEFICIENCY SYNDROME
     Route: 048
     Dates: start: 20070619
  18. UNKNOWN DRUG [Concomitant]
     Indication: FACTOR VIII DEFICIENCY
     Route: 058
     Dates: start: 20070814, end: 20080107
  19. UNKNOWN DRUG [Concomitant]
     Dosage: 2IU3 PER DAY
     Dates: start: 20080108, end: 20080204

REACTIONS (5)
  - ABDOMINAL PAIN [None]
  - HEPATIC ENZYME INCREASED [None]
  - INSOMNIA [None]
  - LOSS OF CONSCIOUSNESS [None]
  - NAUSEA [None]
